FAERS Safety Report 17136214 (Version 1)
Quarter: 2019Q4

REPORT INFORMATION
  Report Type: Not Available
  Country: US (occurrence: US)
  Receive Date: 20191210
  Receipt Date: 20191210
  Transmission Date: 20200122
  Serious: No
  Sender: FDA-Public Use
  Company Number: US-NEUROCRINE BIOSCIENCES INC.-2019NBI03717

PATIENT
  Sex: Female

DRUGS (13)
  1. METFORMIN [Concomitant]
     Active Substance: METFORMIN HYDROCHLORIDE
  2. CLONAZEPAM. [Concomitant]
     Active Substance: CLONAZEPAM
  3. PERPHENAZINE. [Concomitant]
     Active Substance: PERPHENAZINE
  4. INGREZZA [Suspect]
     Active Substance: VALBENAZINE
     Indication: TARDIVE DYSKINESIA
     Route: 048
  5. QUETIAPINE. [Concomitant]
     Active Substance: QUETIAPINE
  6. VENLAFAXINE [Concomitant]
     Active Substance: VENLAFAXINE HYDROCHLORIDE
  7. CARBAMAZEPINE. [Concomitant]
     Active Substance: CARBAMAZEPINE
  8. MVI [Concomitant]
     Active Substance: VITAMINS
  9. DOXYCYCLINE. [Concomitant]
     Active Substance: DOXYCYCLINE
  10. TRAZODONE [Concomitant]
     Active Substance: TRAZODONE HYDROCHLORIDE
  11. PREVACID [Concomitant]
     Active Substance: LANSOPRAZOLE
  12. IBUPROFEN. [Concomitant]
     Active Substance: IBUPROFEN
  13. VITAMIN D [Concomitant]
     Active Substance: VITAMIN D NOS

REACTIONS (3)
  - Dysphemia [Unknown]
  - Balance disorder [Unknown]
  - Somnolence [Unknown]
